FAERS Safety Report 6105523-5 (Version None)
Quarter: 2009Q1

REPORT INFORMATION
  Report Type: 
  Country: None (occurrence: None)
  Receive Date: 20090306
  Receipt Date: 20090303
  Transmission Date: 20090719
  Serious: Yes (Hospitalization)
  Sender: FDA-Public Use
  Company Number: B0547327A

PATIENT
  Age: 35 Year
  Sex: Female
  Weight: 68 kg

DRUGS (6)
  1. PAXIL [Suspect]
     Indication: DEPRESSION
     Dosage: 20MG PER DAY
     Route: 048
     Dates: start: 20080917, end: 20081114
  2. UNKNOWN DRUG [Suspect]
     Indication: DRUG USE FOR UNKNOWN INDICATION
     Route: 065
     Dates: start: 20081101, end: 20081101
  3. XELODA [Suspect]
     Indication: BREAST CANCER
     Dosage: 1200MG TWICE PER DAY
     Route: 048
     Dates: start: 20081112, end: 20081115
  4. NOVAMIN [Concomitant]
     Dosage: 40MG PER DAY
     Route: 048
     Dates: start: 20080607, end: 20081110
  5. OXYCONTIN [Concomitant]
     Indication: CANCER PAIN
     Route: 048
     Dates: start: 20080607, end: 20081115
  6. TAXOL [Concomitant]
     Dosage: 90MG PER DAY
     Route: 042
     Dates: start: 20081112

REACTIONS (8)
  - ALTERED STATE OF CONSCIOUSNESS [None]
  - BLOOD PRESSURE DECREASED [None]
  - CONVULSION [None]
  - HYPERTHERMIA [None]
  - MUSCLE CONTRACTURE [None]
  - MUSCULOSKELETAL STIFFNESS [None]
  - NEUROLEPTIC MALIGNANT SYNDROME [None]
  - PYREXIA [None]
